FAERS Safety Report 23447281 (Version 5)
Quarter: 2024Q2

REPORT INFORMATION
  Report Type: Spontaneous
  Country: US (occurrence: US)
  Receive Date: 20240126
  Receipt Date: 20240621
  Transmission Date: 20240716
  Serious: Yes (Hospitalization, Other)
  Sender: FDA-Public Use
  Company Number: US-BEH-2024167852

PATIENT
  Age: 33 Year
  Sex: Male

DRUGS (6)
  1. HUMATE-P [Suspect]
     Active Substance: HUMAN COAGULATION FACTOR VIII/VON WILLEBRAND FACTOR COMPLEX
     Indication: Von Willebrand^s disease
     Dosage: 6810 INTERNATIONAL UNIT, TIW
     Route: 042
     Dates: start: 201511, end: 202403
  2. HUMATE-P [Suspect]
     Active Substance: HUMAN COAGULATION FACTOR VIII/VON WILLEBRAND FACTOR COMPLEX
     Dosage: 11200 IU, BIW
     Route: 042
     Dates: start: 201705
  3. KESIMPTA [Suspect]
     Active Substance: OFATUMUMAB
  4. KESIMPTA [Suspect]
     Active Substance: OFATUMUMAB
     Dosage: 3 DF
  5. HEPARIN [Concomitant]
     Active Substance: HEPARIN SODIUM
  6. SODIUM CHLORIDE [Concomitant]
     Active Substance: SODIUM CHLORIDE

REACTIONS (7)
  - Haemarthrosis [Recovered/Resolved]
  - Epistaxis [Unknown]
  - Arthralgia [Unknown]
  - Haemarthrosis [Unknown]
  - Epistaxis [Unknown]
  - Haematological infection [Unknown]
  - Epistaxis [Recovered/Resolved]

NARRATIVE: CASE EVENT DATE: 20240101
